FAERS Safety Report 20444769 (Version 9)
Quarter: 2024Q1

REPORT INFORMATION
  Report Type: Spontaneous
  Country: US (occurrence: US)
  Receive Date: 20220208
  Receipt Date: 20240116
  Transmission Date: 20240409
  Serious: Yes (Other)
  Sender: FDA-Public Use
  Company Number: US-PFIZER INC-202101566885

PATIENT
  Age: 67 Year
  Sex: Female
  Weight: 79.38 kg

DRUGS (5)
  1. IBRANCE [Suspect]
     Active Substance: PALBOCICLIB
     Indication: Breast cancer metastatic
     Dosage: 125 MG
  2. IBRANCE [Suspect]
     Active Substance: PALBOCICLIB
     Dosage: 125 MG, 1X/DAY
     Dates: start: 202109
  3. IBRANCE [Suspect]
     Active Substance: PALBOCICLIB
     Dosage: 100 MG
  4. FULVESTRANT [Concomitant]
     Active Substance: FULVESTRANT
     Indication: Hormone suppression therapy
     Dosage: 500 ON EACH SIDE, MONTHLY
     Dates: start: 202109
  5. ADVIL [Concomitant]
     Active Substance: IBUPROFEN
     Dosage: UNK, AS NEEDED

REACTIONS (13)
  - Osteoporosis [Unknown]
  - Cellulitis [Unknown]
  - Myalgia [Unknown]
  - Arthralgia [Unknown]
  - White blood cell count decreased [Not Recovered/Not Resolved]
  - Increased appetite [Unknown]
  - Cough [Unknown]
  - Frustration tolerance decreased [Unknown]
  - Fatigue [Unknown]
  - Body height decreased [Unknown]
  - Weight increased [Unknown]
  - Arthropathy [Unknown]
  - Food poisoning [Unknown]
